FAERS Safety Report 25195060 (Version 1)
Quarter: 2025Q2

REPORT INFORMATION
  Report Type: Report from Study
  Country: CA (occurrence: CA)
  Receive Date: 20250415
  Receipt Date: 20250415
  Transmission Date: 20250716
  Serious: Yes (Death, Other)
  Sender: TAKEDA
  Company Number: CA-TAKEDA-2025TUS036646

PATIENT
  Sex: Female

DRUGS (29)
  1. HUMAN IMMUNOGLOBULIN G [Suspect]
     Active Substance: HUMAN IMMUNOGLOBULIN G
     Indication: Secondary immunodeficiency
     Dosage: 5 GRAM, 1/WEEK
     Dates: start: 20250106
  2. WARFARIN [Concomitant]
     Active Substance: WARFARIN
  3. AMOXICILLIN\CLAVULANIC ACID [Concomitant]
     Active Substance: AMOXICILLIN\CLAVULANIC ACID
  4. POMALIDOMIDE [Concomitant]
     Active Substance: POMALIDOMIDE
  5. DEXAMETHASONE [Concomitant]
     Active Substance: DEXAMETHASONE
  6. DARBEPOETIN ALFA [Concomitant]
     Active Substance: DARBEPOETIN ALFA
  7. ALTEPLASE [Concomitant]
     Active Substance: ALTEPLASE
  8. VENTOLIN [Concomitant]
     Active Substance: ALBUTEROL SULFATE
  9. SYMBICORT [Concomitant]
     Active Substance: BUDESONIDE\FORMOTEROL FUMARATE DIHYDRATE
  10. IRON SUCROSE [Concomitant]
     Active Substance: IRON SUCROSE
  11. ACYCLOVIR [Concomitant]
     Active Substance: ACYCLOVIR
  12. LANSOPRAZOLE [Concomitant]
     Active Substance: LANSOPRAZOLE
  13. METOCLOPRAMIDE [Concomitant]
     Active Substance: METOCLOPRAMIDE
  14. HYDROMORPHONE [Concomitant]
     Active Substance: HYDROMORPHONE
  15. VITAMIN D3 [Concomitant]
     Active Substance: CHOLECALCIFEROL
  16. BUDESONIDE [Concomitant]
     Active Substance: BUDESONIDE
  17. SPIRIVA [Concomitant]
     Active Substance: TIOTROPIUM BROMIDE MONOHYDRATE
  18. CALCIUM CARBONATE [Concomitant]
     Active Substance: CALCIUM CARBONATE
  19. MONTELUKAST [Concomitant]
     Active Substance: MONTELUKAST
  20. BISOPROLOL [Concomitant]
     Active Substance: BISOPROLOL
  21. CALCITRIOL [Concomitant]
     Active Substance: CALCITRIOL
  22. POLYETHYLENE GLYCOL [Concomitant]
     Active Substance: POLYETHYLENE GLYCOL
  23. AMLODIPINE [Concomitant]
     Active Substance: AMLODIPINE BESYLATE
  24. NITROGLYCERIN [Concomitant]
     Active Substance: NITROGLYCERIN
  25. MAGNESIUM [Concomitant]
     Active Substance: MAGNESIUM
  26. ZOPICLONE [Concomitant]
     Active Substance: ZOPICLONE
  27. ALPRAZOLAM [Concomitant]
     Active Substance: ALPRAZOLAM
  28. ACETAMINOPHEN [Concomitant]
     Active Substance: ACETAMINOPHEN
  29. DIMENHYDRINATE [Concomitant]
     Active Substance: DIMENHYDRINATE

REACTIONS (1)
  - Death [Fatal]
